FAERS Safety Report 8825648 (Version 1)
Quarter: 2012Q4

REPORT INFORMATION
  Report Type: 
  Country: US (occurrence: US)
  Receive Date: 20121004
  Receipt Date: 20121004
  Transmission Date: 20130627
  Serious: Yes (Death, Other)
  Sender: FDA-Public Use
  Company Number: US-CELGENEUS-163-21880-12100281

PATIENT
  Sex: Male

DRUGS (1)
  1. REVLIMID [Suspect]
     Indication: LYMPHOMA NOS
     Dosage: 10 Milligram
     Route: 048
     Dates: start: 20120820

REACTIONS (2)
  - Sepsis [Fatal]
  - Metastatic lymphoma [Unknown]
